FAERS Safety Report 4530131-7 (Version None)
Quarter: 2004Q4

REPORT INFORMATION
  Report Type: 
  Country: None (occurrence: None)
  Receive Date: 20041217
  Receipt Date: 20041207
  Transmission Date: 20050328
  Serious: Yes (Hospitalization, Other)
  Sender: FDA-Public Use
  Company Number: CA-JNJFOC-20040303131

PATIENT
  Age: 42 Year
  Sex: Male

DRUGS (2)
  1. RISPERDAL [Suspect]
  2. DEXAMETHASONE [Concomitant]

REACTIONS (3)
  - DEEP VEIN THROMBOSIS [None]
  - EXTRAPYRAMIDAL DISORDER [None]
  - MEDICAL DEVICE COMPLICATION [None]
